FAERS Safety Report 13530776 (Version 3)
Quarter: 2017Q2

REPORT INFORMATION
  Report Type: Spontaneous
  Country: IE (occurrence: IE)
  Receive Date: 20170510
  Receipt Date: 20170526
  Transmission Date: 20170830
  Serious: Yes (Hospitalization, Other)
  Sender: FDA-Public Use
  Company Number: IE-UCBSA-2017017529

PATIENT
  Age: 50 Year
  Sex: Female

DRUGS (2)
  1. STELARA [Concomitant]
     Active Substance: USTEKINUMAB
     Indication: PRODUCT USED FOR UNKNOWN INDICATION
     Dosage: 45 MG
     Dates: start: 2011
  2. CIMZIA [Suspect]
     Active Substance: CERTOLIZUMAB PEGOL
     Indication: PSORIATIC ARTHROPATHY
     Dosage: 400 MG, (200 MGX2 FIRST DOSE)
     Route: 058
     Dates: start: 20170425, end: 20170425

REACTIONS (6)
  - Hypersensitivity [Unknown]
  - Abdominal pain [Not Recovered/Not Resolved]
  - Rash [Recovering/Resolving]
  - Urticaria [Recovering/Resolving]
  - Nausea [Recovering/Resolving]
  - Angioedema [Recovering/Resolving]

NARRATIVE: CASE EVENT DATE: 20170425
